FAERS Safety Report 22082145 (Version 1)
Quarter: 2023Q1

REPORT INFORMATION
  Report Type: Spontaneous
  Country: US (occurrence: US)
  Receive Date: 20230310
  Receipt Date: 20230310
  Transmission Date: 20230418
  Serious: No
  Sender: FDA-Public Use
  Company Number: US-GSK-US2023032822

PATIENT
  Age: 61 Year
  Sex: Female

DRUGS (1)
  1. ADVAIR DISKUS [Suspect]
     Active Substance: FLUTICASONE PROPIONATE\SALMETEROL XINAFOATE
     Indication: Asthma
     Dosage: 1 DF, BID; ADVAIR DISKUS 500/50 MCG 1 INHALATION BID
     Dates: start: 201902

REACTIONS (2)
  - Fall [Not Recovered/Not Resolved]
  - Limb injury [Not Recovered/Not Resolved]

NARRATIVE: CASE EVENT DATE: 20230221
